FAERS Safety Report 7291370-8 (Version None)
Quarter: 2011Q1

REPORT INFORMATION
  Report Type: 
  Country: None (occurrence: None)
  Receive Date: 20110214
  Receipt Date: 20110204
  Transmission Date: 20110831
  Serious: Yes (Death)
  Sender: FDA-Public Use
  Company Number: B0689194A

PATIENT
  Sex: Male

DRUGS (5)
  1. PAXIL [Suspect]
     Indication: SOCIAL PHOBIA
     Dosage: 10MG PER DAY
     Route: 048
     Dates: start: 20100826
  2. ABILIFY [Concomitant]
     Dosage: 3MG PER DAY
     Route: 048
     Dates: start: 20100826
  3. BIO THREE [Concomitant]
     Dosage: 3G PER DAY
     Route: 048
     Dates: start: 20100826
  4. ETHYL LOFLAZEPATE [Concomitant]
     Indication: SOCIAL PHOBIA
     Dosage: 1MG PER DAY
     Route: 048
     Dates: start: 20100805, end: 20100825
  5. SENIRAN [Suspect]
     Indication: SOCIAL PHOBIA
     Route: 048
     Dates: start: 20100707

REACTIONS (2)
  - INTENTIONAL OVERDOSE [None]
  - COMPLETED SUICIDE [None]
